FAERS Safety Report 9010079 (Version 2)
Quarter: 2013Q1

REPORT INFORMATION
  Report Type: Spontaneous
  Country: JP (occurrence: JP)
  Receive Date: 20130110
  Receipt Date: 20130128
  Transmission Date: 20140127
  Serious: No
  Sender: FDA-Public Use
  Company Number: JP-VERTEX PHARMACEUTICALS INC.-2013-000442

PATIENT
  Age: 63 Year
  Sex: Male

DRUGS (4)
  1. TELAVIC [Suspect]
     Dosage: 2250 MG, QD
     Route: 048
     Dates: start: 20121127
  2. TELAVIC [Suspect]
     Dosage: 1500 MG, QD
     Route: 048
     Dates: start: 201212
  3. RIBAVIRIN [Suspect]
     Dosage: 800 MG, QD
     Route: 048
     Dates: start: 20121127
  4. PEGINTRON                          /01543001/ [Suspect]
     Dosage: 1.5 ?G/KG, UNK
     Route: 058
     Dates: start: 20121127

REACTIONS (1)
  - Rash [Recovered/Resolved]
